FAERS Safety Report 4843939-5 (Version None)
Quarter: 2005Q4

REPORT INFORMATION
  Report Type: 
  Country: None (occurrence: None)
  Receive Date: 20051202
  Receipt Date: 20050714
  Transmission Date: 20060501
  Serious: No
  Sender: FDA-Public Use
  Company Number: US-GLAXOSMITHKLINE-A0566224A

PATIENT
  Age: 71 Year
  Sex: Female
  Weight: 69.5 kg

DRUGS (9)
  1. AUGMENTIN [Suspect]
     Indication: SKIN INFECTION
     Dosage: 1TAB TWICE PER DAY
     Route: 048
     Dates: start: 20050706, end: 20050709
  2. LANTUS [Concomitant]
  3. NOVOLOG [Concomitant]
  4. METOPROLOL [Concomitant]
  5. GLUCOPHAGE [Concomitant]
  6. CLONIDINE [Concomitant]
  7. PLATIL [Concomitant]
  8. PRILOSEC [Concomitant]
  9. AMBIEN [Concomitant]

REACTIONS (3)
  - ABDOMINAL PAIN [None]
  - DIARRHOEA [None]
  - HAEMATOCHEZIA [None]
